FAERS Safety Report 9997862 (Version 2)
Quarter: 2015Q1

REPORT INFORMATION
  Report Type: Spontaneous
  Country: SE (occurrence: SE)
  Receive Date: 20140311
  Receipt Date: 20150310
  Transmission Date: 20150721
  Serious: Yes (Other)
  Sender: FDA-Public Use
  Company Number: SE-PFIZER INC-2014067789

PATIENT
  Age: 70 Year
  Sex: Male

DRUGS (15)
  1. GLYCERYL TRINITRATE [Concomitant]
     Active Substance: NITROGLYCERIN
  2. ENALAPRIL [Concomitant]
     Active Substance: ENALAPRIL
  3. ISOPTIN - SLOW RELEASE [Concomitant]
  4. FURIX RETARD [Concomitant]
     Active Substance: FUROSEMIDE
  5. OMEPRAZOL MYLAN [Concomitant]
     Active Substance: OMEPRAZOLE
     Dosage: 20 MG, UNK
  6. ORALOVITE [Concomitant]
  7. DOLCONTIN [Suspect]
     Active Substance: MORPHINE
     Dosage: 6-7 DFS
     Route: 048
     Dates: start: 20130116, end: 20130116
  8. BISOPROLOL [Concomitant]
     Active Substance: BISOPROLOL
  9. TEGRETOL XR [Concomitant]
     Active Substance: CARBAMAZEPINE
  10. CREON [Concomitant]
     Active Substance: PANCRELIPASE AMYLASE\PANCRELIPASE LIPASE\PANCRELIPASE PROTEASE
  11. KALEORID [Concomitant]
     Active Substance: POTASSIUM CHLORIDE
  12. PANODIL [Concomitant]
     Active Substance: ACETAMINOPHEN
  13. SIMVASTATIN RANBAXY [Concomitant]
  14. POSTAFEN [Concomitant]
     Active Substance: BUCLIZINE HYDROCHLORIDE
  15. TROMBYL [Concomitant]
     Active Substance: ASPIRIN

REACTIONS (2)
  - Intentional self-injury [Recovered/Resolved]
  - Toxicity to various agents [Recovered/Resolved]

NARRATIVE: CASE EVENT DATE: 20130116
